FAERS Safety Report 24770742 (Version 1)
Quarter: 2024Q4

REPORT INFORMATION
  Report Type: Spontaneous
  Country: CA (occurrence: CA)
  Receive Date: 20241224
  Receipt Date: 20241224
  Transmission Date: 20250115
  Serious: Yes (Death, Life-Threatening, Hospitalization, Disabling, Other)
  Sender: CHATTEM
  Company Number: CA-SA-2020SA068453

PATIENT
  Age: 43 Year
  Sex: Female

DRUGS (14)
  1. DESOXIMETASONE [Suspect]
     Active Substance: DESOXIMETASONE
     Indication: Rheumatoid arthritis
     Dosage: 25 MG, QW
     Route: 048
  2. DESOXIMETASONE [Suspect]
     Active Substance: DESOXIMETASONE
     Dosage: UNK
     Route: 058
  3. DESOXIMETASONE [Suspect]
     Active Substance: DESOXIMETASONE
     Route: 048
  4. HYDROCORTISONE [Suspect]
     Active Substance: HYDROCORTISONE
     Indication: Rheumatoid arthritis
     Dosage: UNK
     Route: 058
  5. CETIRIZINE HYDROCHLORIDE [Suspect]
     Active Substance: CETIRIZINE HYDROCHLORIDE
     Indication: Rheumatoid arthritis
     Dosage: DOSE DESCRIPTION : 10 MG
     Route: 065
  6. CETIRIZINE HYDROCHLORIDE [Suspect]
     Active Substance: CETIRIZINE HYDROCHLORIDE
     Dosage: DOSE DESCRIPTION : 25 MG
     Route: 065
  7. CETIRIZINE HYDROCHLORIDE [Suspect]
     Active Substance: CETIRIZINE HYDROCHLORIDE
     Dosage: DOSE DESCRIPTION : UNK
     Route: 065
  8. FOLIC ACID [Suspect]
     Active Substance: FOLIC ACID
     Indication: Rheumatoid arthritis
     Dosage: DOSE DESCRIPTION : 5 MG
     Route: 065
  9. FOLIC ACID [Suspect]
     Active Substance: FOLIC ACID
     Dosage: DOSE DESCRIPTION : 1 MG
     Route: 058
  10. FOLIC ACID [Suspect]
     Active Substance: FOLIC ACID
     Dosage: DOSE DESCRIPTION : 1 G
     Route: 065
  11. FOLIC ACID [Suspect]
     Active Substance: FOLIC ACID
     Dosage: DOSE DESCRIPTION : 5 MG
     Route: 048
  12. FOLIC ACID [Suspect]
     Active Substance: FOLIC ACID
     Dosage: DOSE DESCRIPTION : 1 MG
     Route: 065
  13. FOLIC ACID [Suspect]
     Active Substance: FOLIC ACID
     Dosage: 500 UNK
     Route: 065
  14. DICLOFENAC SODIUM [Suspect]
     Active Substance: DICLOFENAC SODIUM
     Indication: Product used for unknown indication
     Dosage: 50 MG
     Route: 065

REACTIONS (1)
  - Abdominal discomfort [Fatal]
